FAERS Safety Report 9064824 (Version 1)
Quarter: 2013Q1

REPORT INFORMATION
  Report Type: Spontaneous
  Country: IT (occurrence: IT)
  Receive Date: 20130130
  Receipt Date: 20130130
  Transmission Date: 20140127
  Serious: Yes (Other)
  Sender: FDA-Public Use
  Company Number: IT-BRISTOL-MYERS SQUIBB COMPANY-17311556

PATIENT
  Age: 90 Year
  Sex: Male

DRUGS (8)
  1. COUMADIN TABS 5 MG [Suspect]
     Indication: ATRIAL FIBRILLATION
     Route: 048
     Dates: start: 20110630, end: 20120129
  2. FERROGRAD C [Concomitant]
     Route: 048
  3. EPREX [Concomitant]
     Route: 058
  4. MINITRAN [Concomitant]
     Route: 062
  5. LUMIGAN [Concomitant]
     Dosage: CONJUCTIVAL
  6. TRIATEC [Concomitant]
     Route: 048
  7. ZYLORIC [Concomitant]
     Route: 048
  8. LASIX [Concomitant]
     Route: 048

REACTIONS (2)
  - Pancytopenia [Recovering/Resolving]
  - Epistaxis [Recovering/Resolving]
